FAERS Safety Report 20233835 (Version 2)
Quarter: 2022Q4

REPORT INFORMATION
  Report Type: Report from Study
  Country: US (occurrence: US)
  Receive Date: 20211227
  Receipt Date: 20221215
  Transmission Date: 20230113
  Serious: Yes (Hospitalization, Other)
  Sender: FDA-Public Use
  Company Number: US-BRISTOL-MYERS SQUIBB COMPANY-BMS-2021-137419

PATIENT
  Age: 14 Year
  Sex: Female
  Weight: 74.8 kg

DRUGS (9)
  1. TRIAMCINOLONE ACETONIDE [Suspect]
     Active Substance: TRIAMCINOLONE ACETONIDE
     Indication: Dermatitis atopic
     Dosage: 1 PERCENT, OINTMENT 2/DAY
     Route: 061
     Dates: start: 20190814, end: 20200401
  2. VENTOLIN HFA [Concomitant]
     Active Substance: ALBUTEROL SULFATE
     Indication: Asthma
     Dosage: 90 MCG AS REQUIRED
     Dates: start: 20180525
  3. EUCERIN [SALICYLIC ACID] [Concomitant]
     Indication: Supportive care
     Dosage: 454 GRAM, BID
     Route: 003
     Dates: start: 20170226
  4. CLARITIN [Concomitant]
     Active Substance: LORATADINE
     Indication: Hypersensitivity
     Dosage: 5 MILLIGRAM, QD
     Route: 048
     Dates: start: 20200404
  5. ASMANEX [Concomitant]
     Active Substance: MOMETASONE FUROATE
     Indication: Asthma
     Dosage: 100 MICROGRAM, BID
     Dates: start: 20180623, end: 20181023
  6. ASMANEX [Concomitant]
     Active Substance: MOMETASONE FUROATE
     Dosage: 200 MICROGRAM, BID
     Dates: start: 20200404
  7. VITAMIN D3 [Concomitant]
     Active Substance: CHOLECALCIFEROL
     Indication: Vitamin D deficiency
     Dosage: 2000 UNIT 1000 UNIT 1000 UNIT, BID
     Route: 048
     Dates: start: 20200929
  8. HYDROXYZINE [Concomitant]
     Active Substance: HYDROXYZINE HYDROCHLORIDE
     Indication: Dermatitis atopic
     Dosage: 10 MILLIGRAM, QD
     Route: 048
     Dates: start: 20200401
  9. LIDEX [Concomitant]
     Active Substance: FLUOCINONIDE
     Indication: Dermatitis atopic
     Dosage: 120 GRAM, BID
     Route: 061
     Dates: start: 20181126

REACTIONS (1)
  - Bartonellosis [Recovered/Resolved]

NARRATIVE: CASE EVENT DATE: 20200930
